FAERS Safety Report 5113245-2 (Version None)
Quarter: 2006Q3

REPORT INFORMATION
  Report Type: 
  Country: None (occurrence: None)
  Receive Date: 20060922
  Receipt Date: 20060918
  Transmission Date: 20061208
  Serious: Yes (Disabling)
  Sender: FDA-Public Use
  Company Number: ES-MERCK-0609ESP00033

PATIENT
  Age: 35 Year
  Sex: Male

DRUGS (2)
  1. PROPECIA [Suspect]
     Indication: ALOPECIA
     Route: 048
     Dates: start: 20040401, end: 20060901
  2. AZATHIOPRINE [Suspect]
     Indication: BEHCET'S SYNDROME
     Route: 048

REACTIONS (4)
  - AZOOSPERMIA [None]
  - DRUG INTERACTION [None]
  - SEMEN VOLUME DECREASED [None]
  - TESTICULAR ATROPHY [None]
